FAERS Safety Report 20200838 (Version 3)
Quarter: 2022Q1

REPORT INFORMATION
  Report Type: Spontaneous
  Country: US (occurrence: US)
  Receive Date: 20211217
  Receipt Date: 20220118
  Transmission Date: 20220423
  Serious: Yes (Other)
  Sender: FDA-Public Use
  Company Number: US-UNITED THERAPEUTICS-UNT-2021-025508

PATIENT
  Age: 50 Year
  Sex: Male

DRUGS (5)
  1. REMODULIN [Suspect]
     Active Substance: TREPROSTINIL
     Indication: Pulmonary arterial hypertension
     Dosage: UNK UNK, CONTINUING
     Route: 058
     Dates: start: 20210902
  2. REMODULIN [Suspect]
     Active Substance: TREPROSTINIL
     Dosage: UNK UNK, CONTINUING (AT RATE OF 19UL/HR)
     Route: 058
     Dates: start: 2021
  3. REMODULIN [Suspect]
     Active Substance: TREPROSTINIL
     Dosage: 0.05044 ?G/KG, CONTINUING, (AT RATE OF 23UL/HR)
     Route: 058
     Dates: start: 2021, end: 20211209
  4. REMODULIN [Suspect]
     Active Substance: TREPROSTINIL
     Dosage: 0.04167 ?G/KG, CONTINUING (AT RATE OF 19UL/HR)
     Route: 058
     Dates: start: 20211209
  5. REMODULIN [Suspect]
     Active Substance: TREPROSTINIL
     Dosage: 0.05044 ?G/KG, CONTINUING
     Route: 058
     Dates: start: 202112

REACTIONS (9)
  - Device dislocation [Unknown]
  - Infusion site reaction [Unknown]
  - Infusion site warmth [Unknown]
  - Headache [Unknown]
  - Nausea [Unknown]
  - Flushing [Unknown]
  - Device breakage [Recovered/Resolved]
  - Device difficult to use [Recovered/Resolved]
  - Infusion site pain [Unknown]

NARRATIVE: CASE EVENT DATE: 20211208
